FAERS Safety Report 4497461-9 (Version None)
Quarter: 2004Q4

REPORT INFORMATION
  Report Type: 
  Country: None (occurrence: None)
  Receive Date: 20041110
  Receipt Date: 20041101
  Transmission Date: 20050328
  Serious: Yes (Hospitalization, Disabling)
  Sender: FDA-Public Use
  Company Number: US-MERCK-0411USA00356

PATIENT
  Age: 57 Year
  Sex: Male

DRUGS (16)
  1. VIOXX [Suspect]
     Indication: PAIN
     Route: 048
     Dates: start: 19990101, end: 20030101
  2. DIOVAN [Concomitant]
     Route: 065
  3. ZOCOR [Concomitant]
     Route: 065
  4. METOPROLOL [Concomitant]
     Route: 065
  5. ADVAIR [Concomitant]
     Route: 065
  6. EPOGEN [Concomitant]
     Route: 065
  7. ATROVENT [Concomitant]
     Route: 065
  8. XANAX [Concomitant]
     Route: 065
  9. ISOSORBIDE MONONITRATE [Concomitant]
     Route: 065
  10. GEMFIBROZIL [Concomitant]
     Route: 065
  11. OXYCONTIN [Concomitant]
     Route: 065
  12. ALBUTEROL [Concomitant]
     Route: 065
  13. CEFUROXIME [Concomitant]
     Route: 065
  14. PREDNISONE [Concomitant]
     Route: 065
  15. AMBIEN [Concomitant]
     Route: 065
  16. LEXAPRO [Concomitant]
     Route: 065

REACTIONS (2)
  - CEREBROVASCULAR ACCIDENT [None]
  - MYOCARDIAL INFARCTION [None]
